FAERS Safety Report 15180410 (Version 1)
Quarter: 2018Q3

REPORT INFORMATION
  Report Type: Spontaneous
  Country: FR (occurrence: FR)
  Receive Date: 20180723
  Receipt Date: 20180723
  Transmission Date: 20181010
  Serious: Yes (Hospitalization)
  Sender: FDA-Public Use
  Company Number: FR-TEVA-2018-FR-927301

PATIENT
  Age: 9 Year
  Sex: Male
  Weight: 30 kg

DRUGS (3)
  1. VINCRISTINE TEVA [Suspect]
     Active Substance: VINCRISTINE
     Indication: EWING^S SARCOMA
     Route: 042
     Dates: start: 20180416
  2. DOXORUBICINE TEVA [Suspect]
     Active Substance: DOXORUBICIN
     Indication: EWING^S SARCOMA
     Route: 042
     Dates: start: 20180416
  3. ENDOXAN [Suspect]
     Active Substance: CYCLOPHOSPHAMIDE
     Indication: EWING^S SARCOMA
     Route: 042
     Dates: start: 20180416

REACTIONS (3)
  - Vomiting [Recovered/Resolved]
  - Pancytopenia [Recovered/Resolved]
  - Pyrexia [Recovered/Resolved]

NARRATIVE: CASE EVENT DATE: 20180528
